FAERS Safety Report 8164155-8 (Version None)
Quarter: 2012Q1

REPORT INFORMATION
  Report Type: 
  Country: None (occurrence: None)
  Receive Date: 20120224
  Receipt Date: 20120221
  Transmission Date: 20120608
  Serious: Yes (Other)
  Sender: FDA-Public Use
  Company Number: CA-B.I. PHARMACEUTICALS,INC./RIDGEFIELD-2012-CN-00404CN

PATIENT
  Age: 67 Year
  Sex: Female
  Weight: 52.61 kg

DRUGS (8)
  1. ONE A DAY WOMEN 50 PLUS [Concomitant]
  2. CALCIUM CITRATE [Concomitant]
     Route: 048
  3. SINGULAIR [Concomitant]
     Route: 048
  4. ATACAND [Concomitant]
     Route: 048
  5. SPIRIVA [Suspect]
     Dosage: 18 MCG
     Route: 055
  6. SYMBICORT [Concomitant]
     Route: 055
  7. TAMOXIFEN CITRATE [Concomitant]
     Route: 048
  8. CALCIUM PLUS [Concomitant]
     Route: 048

REACTIONS (7)
  - CARDIAC DISORDER [None]
  - URINARY RETENTION [None]
  - URINARY TRACT INFECTION [None]
  - ASTHENIA [None]
  - APHAGIA [None]
  - BLOOD POTASSIUM DECREASED [None]
  - CONSTIPATION [None]
